FAERS Safety Report 10433928 (Version 2)
Quarter: 2014Q4

REPORT INFORMATION
  Report Type: Spontaneous
  Country: US (occurrence: US)
  Receive Date: 20140905
  Receipt Date: 20141230
  Transmission Date: 20150528
  Serious: Yes (Hospitalization)
  Sender: FDA-Public Use
  Company Number: US-GLAXOSMITHKLINE-A1083771A

PATIENT
  Age: 10 Year
  Sex: Female
  Weight: 31.75 kg

DRUGS (3)
  1. REVATIO [Suspect]
     Active Substance: SILDENAFIL CITRATE
     Indication: PRODUCT USED FOR UNKNOWN INDICATION
     Route: 065
  2. FLOLAN [Suspect]
     Active Substance: EPOPROSTENOL SODIUM
     Dates: start: 20140718
  3. FLOLAN [Suspect]
     Active Substance: EPOPROSTENOL SODIUM
     Indication: PULMONARY ARTERIAL HYPERTENSION
     Dosage: 8 NG/KG/MIN, CONCENTRATION: 5,000 NG/ML, PUMP RATE 68 ML/DAY, VIAL STRENGTH 1.5 MG.8 NG/KG/MIN,[...]
     Route: 042
     Dates: start: 20140718

REACTIONS (8)
  - Pain in jaw [Unknown]
  - Catheter site pruritus [Unknown]
  - Flushing [Recovered/Resolved]
  - Feeling abnormal [Unknown]
  - Rash papular [Unknown]
  - Dyspnoea [Unknown]
  - Oxygen saturation [Unknown]
  - Diarrhoea [Unknown]

NARRATIVE: CASE EVENT DATE: 20140904
